FAERS Safety Report 16575724 (Version 1)
Quarter: 2019Q3

REPORT INFORMATION
  Report Type: Spontaneous
  Country: US (occurrence: US)
  Receive Date: 20190716
  Receipt Date: 20190716
  Transmission Date: 20191004
  Serious: No
  Sender: FDA-Public Use
  Company Number: US-APOTEX-2019AP010153

PATIENT
  Age: 53 Year
  Sex: Female

DRUGS (4)
  1. CORTISONE [Concomitant]
     Active Substance: CORTISONE
     Indication: ORTHOPAEDIC EXAMINATION ABNORMAL
     Dosage: UNSPECIFIED DATE OF MARCH
     Route: 065
  2. CELECOXIB. [Suspect]
     Active Substance: CELECOXIB
     Indication: ORTHOPAEDIC EXAMINATION ABNORMAL
     Dosage: 200 MG, BID
     Route: 048
     Dates: start: 20190208, end: 20190313
  3. CORTISONE [Concomitant]
     Active Substance: CORTISONE
     Indication: ASTHENIA
  4. CELECOXIB. [Suspect]
     Active Substance: CELECOXIB
     Indication: ARTHRITIS

REACTIONS (11)
  - Swelling face [Recovering/Resolving]
  - Contusion [Recovering/Resolving]
  - Swelling [Recovering/Resolving]
  - Ocular hyperaemia [Recovering/Resolving]
  - Alopecia [Recovering/Resolving]
  - Hypersensitivity [Recovering/Resolving]
  - Eye swelling [Recovering/Resolving]
  - Constipation [Recovering/Resolving]
  - Pharyngeal swelling [Recovering/Resolving]
  - Scratch [Recovering/Resolving]
  - Rash [Recovering/Resolving]

NARRATIVE: CASE EVENT DATE: 20190310
